FAERS Safety Report 17420626 (Version 1)
Quarter: 2020Q1

REPORT INFORMATION
  Report Type: Spontaneous
  Country: US (occurrence: US)
  Receive Date: 20200214
  Receipt Date: 20200214
  Transmission Date: 20200409
  Serious: No
  Sender: FDA-Public Use
  Company Number: US-PFIZER INC-2018013753

PATIENT
  Age: 56 Year
  Sex: Male
  Weight: 86 kg

DRUGS (3)
  1. LYRICA [Suspect]
     Active Substance: PREGABALIN
     Indication: NEURALGIA
     Dosage: 100 MG, 2X/DAY
  2. LYRICA [Suspect]
     Active Substance: PREGABALIN
     Indication: SURGERY
     Dosage: 50 MG, 1X/DAY; (IN AM BY MOUTH)
     Route: 048
  3. LYRICA [Suspect]
     Active Substance: PREGABALIN
     Indication: PAIN
     Dosage: 75 MG, 1X/DAY; (AT NIGHT BY MOUTH 1 TIME DAILY)
     Route: 048

REACTIONS (1)
  - Malaise [Unknown]
